FAERS Safety Report 15384512 (Version 1)
Quarter: 2018Q3

REPORT INFORMATION
  Report Type: Spontaneous
  Country: US (occurrence: US)
  Receive Date: 20180907
  Receipt Date: 20180907
  Transmission Date: 20181010
  Serious: Yes (Hospitalization, Other)
  Sender: FDA-Public Use
  Company Number: None

PATIENT
  Age: 72 Year
  Sex: Male
  Weight: 90.45 kg

DRUGS (1)
  1. HYDROXYCHLOROQUINE [Suspect]
     Active Substance: HYDROXYCHLOROQUINE
     Indication: POLYARTHRITIS
     Route: 048
     Dates: start: 20180709, end: 20180905

REACTIONS (3)
  - Eye irritation [None]
  - Rash papular [None]
  - Rash generalised [None]

NARRATIVE: CASE EVENT DATE: 20180814
